FAERS Safety Report 5733690-1 (Version None)
Quarter: 2008Q2

REPORT INFORMATION
  Report Type: 
  Country: None (occurrence: None)
  Receive Date: 20080509
  Receipt Date: 20080326
  Transmission Date: 20081010
  Serious: No
  Sender: FDA-Public Use
  Company Number: A0717597A

PATIENT

DRUGS (1)
  1. ALTABAX [Suspect]
     Indication: INFECTION PROPHYLAXIS
     Dosage: 1APP TWICE PER DAY
     Route: 061
     Dates: start: 20080301

REACTIONS (1)
  - INFECTION [None]
